FAERS Safety Report 5167492-4 (Version None)
Quarter: 2006Q4

REPORT INFORMATION
  Report Type: 
  Country: None (occurrence: None)
  Receive Date: 20061130
  Receipt Date: 20061116
  Transmission Date: 20070319
  Serious: Yes (Hospitalization)
  Sender: FDA-Public Use
  Company Number: SP-2006-003345

PATIENT
  Sex: Female

DRUGS (2)
  1. ALTEIS [Suspect]
     Indication: HYPERTENSION
     Dosage: 20 MG, QD; PO
     Route: 048
     Dates: end: 20060101
  2. FLUDEX [Suspect]
     Indication: HYPERTENSION
     Dates: end: 20060101

REACTIONS (2)
  - MALAISE [None]
  - TACHYARRHYTHMIA [None]
